FAERS Safety Report 7235856-0 (Version None)
Quarter: 2011Q1

REPORT INFORMATION
  Report Type: 
  Country: None (occurrence: None)
  Receive Date: 20110120
  Receipt Date: 20110113
  Transmission Date: 20110831
  Serious: Yes (Hospitalization)
  Sender: FDA-Public Use
  Company Number: DE-ROCHE-751674

PATIENT
  Sex: Male
  Weight: 95 kg

DRUGS (18)
  1. BEVACIZUMAB [Suspect]
     Dosage: CYCLE 6.  LAST DOSE PRIOR TO SAE: 24 NOVEMBER 2010. DOSE: 1394 MG.
     Route: 042
     Dates: start: 20090918, end: 20101124
  2. GEMCITABINE [Suspect]
     Dosage: CYCLE 5.DOSE:1875 MG
     Route: 042
     Dates: start: 20090827
  3. BISOPROLOL [Concomitant]
     Dosage: DRUG NAME: BISAPROLO PLUS, FREQUENCY: 10/25 MG
     Dates: start: 20061010
  4. FRAGMIN [Concomitant]
     Dates: end: 20100102
  5. BEVACIZUMAB [Suspect]
     Indication: NON-SMALL CELL LUNG CANCER
     Dosage: DOSE REPORTED AS: 1394 MG.,DOSAGE FORM: INFUSION.
     Route: 042
     Dates: start: 20090604
  6. BEVACIZUMAB [Suspect]
     Dosage: CYCLE 5.  DOSE: 1394 MG.
     Route: 042
     Dates: start: 20090827
  7. CONCOR [Concomitant]
     Dates: start: 20061010
  8. CISPLATIN [Suspect]
     Dosage: CYCLE 6.  LAST DOSE PRIOR TO SAE: 18 SEPTEMBER 2009. DOSE: 160 MG.
     Route: 042
     Dates: start: 20090918
  9. FRUSEMID [Concomitant]
  10. GEMCITABINE [Suspect]
     Indication: NON-SMALL CELL LUNG CANCER
     Dosage: DAY 1+8 EVERY 3 WEEKS, DOSE: 1875 MG
     Route: 042
     Dates: start: 20090604
  11. PANTOZOL [Concomitant]
     Dates: start: 20090603
  12. AMLODIPINE [Concomitant]
  13. CISPLATIN [Suspect]
     Dosage: CYCLE 5.  DOSE: 160 MG.
     Route: 042
     Dates: start: 20090827
  14. ALLOPURINOL [Concomitant]
     Dates: start: 20061010
  15. OMEPRAZOLE [Concomitant]
     Dates: start: 20090603
  16. DICLOFENAC SODIUM [Concomitant]
  17. GEMCITABINE [Suspect]
     Dosage: CYCLE 6: DOSE REDUCED ACORDING TO THE STUDY PROTOCOL.  LAST DOSE PRIOR TO SAE: 25 SEPTEMBER 2009.
     Route: 042
     Dates: start: 20090918
  18. CISPLATIN [Suspect]
     Indication: NON-SMALL CELL LUNG CANCER
     Dosage: DOSE REPORTED AS: 160 MG., DAY 1 EVERY 3 WEEKS
     Route: 042
     Dates: start: 20090604

REACTIONS (1)
  - VERTIGO [None]
